FAERS Safety Report 6397210-3 (Version None)
Quarter: 2009Q4

REPORT INFORMATION
  Report Type: 
  Country: None (occurrence: None)
  Receive Date: 20091012
  Receipt Date: 20091001
  Transmission Date: 20100525
  Serious: Yes (Life-Threatening, Hospitalization)
  Sender: FDA-Public Use
  Company Number: PT-PFIZER INC-2009277039

PATIENT
  Age: 69 Year

DRUGS (8)
  1. ZYVOXID [Suspect]
     Indication: STAPHYLOCOCCAL SEPSIS
     Dosage: 600 MG, UNK
     Route: 048
     Dates: start: 20090806, end: 20090821
  2. ZYVOXID [Interacting]
     Dosage: UNK
     Route: 048
     Dates: start: 20090806, end: 20090821
  3. RAMIPRIL [Interacting]
     Dosage: UNK
     Dates: start: 20090717, end: 20090825
  4. AMLODIPINE BESILATE [Concomitant]
     Dosage: UNK
     Dates: start: 20090718, end: 20090826
  5. MEROPENEM [Concomitant]
     Dosage: UNK
     Dates: start: 20090707, end: 20090904
  6. LOSARTAN POTASSIUM [Concomitant]
     Dosage: UNK
     Dates: start: 20090715
  7. SIMVASTATIN [Concomitant]
  8. OMEPRAZOLE [Concomitant]

REACTIONS (2)
  - DRUG INTERACTION [None]
  - NEUTROPENIA [None]
